FAERS Safety Report 19141706 (Version 1)
Quarter: 2021Q2

REPORT INFORMATION
  Report Type: Spontaneous
  Country: US (occurrence: US)
  Receive Date: 20210415
  Receipt Date: 20210415
  Transmission Date: 20210717
  Serious: Yes (Other)
  Sender: FDA-Public Use
  Company Number: US-MALLINCKRODT PHARMACEUTICALS-T202101694

PATIENT
  Age: 9 Week
  Sex: Female

DRUGS (3)
  1. INOMAX [Suspect]
     Active Substance: NITRIC OXIDE
     Indication: PULMONARY HYPERTENSION
     Dosage: UNK (INHALATION)
     Route: 055
  2. INOMAX [Suspect]
     Active Substance: NITRIC OXIDE
     Indication: RIGHT VENTRICULAR ENLARGEMENT
  3. INOMAX [Suspect]
     Active Substance: NITRIC OXIDE
     Indication: RIGHT ATRIAL ENLARGEMENT

REACTIONS (2)
  - Vitamin B complex deficiency [Unknown]
  - Product use issue [Unknown]
